FAERS Safety Report 12391226 (Version 3)
Quarter: 2016Q3

REPORT INFORMATION
  Report Type: Report from Study
  Country: US (occurrence: US)
  Receive Date: 20160520
  Receipt Date: 20160909
  Transmission Date: 20161109
  Serious: Yes (Other)
  Sender: FDA-Public Use
  Company Number: PHEH2016US012384

PATIENT
  Age: 39 Year
  Sex: Female

DRUGS (1)
  1. GILENYA [Suspect]
     Active Substance: FINGOLIMOD HYDROCHLORIDE
     Indication: MULTIPLE SCLEROSIS
     Dosage: 0.5 MG, QD
     Route: 048
     Dates: start: 20160516

REACTIONS (14)
  - Fatigue [Recovered/Resolved]
  - Neuralgia [Unknown]
  - Vision blurred [Unknown]
  - Cognitive disorder [Recovering/Resolving]
  - Dizziness [Recovered/Resolved]
  - Abdominal pain [Recovering/Resolving]
  - Muscular weakness [Recovering/Resolving]
  - Nausea [Recovered/Resolved]
  - Influenza like illness [Recovering/Resolving]
  - Asthenia [Recovered/Resolved]
  - Burning sensation [Unknown]
  - Central nervous system lesion [Unknown]
  - Hypoaesthesia [Recovering/Resolving]
  - Pain [Unknown]

NARRATIVE: CASE EVENT DATE: 20160516
